FAERS Safety Report 4684610-2 (Version None)
Quarter: 2005Q2

REPORT INFORMATION
  Report Type: 
  Country: None (occurrence: None)
  Receive Date: 20050603
  Receipt Date: 20050526
  Transmission Date: 20051028
  Serious: Yes (Death)
  Sender: FDA-Public Use
  Company Number: HQWYE988026MAY05

PATIENT
  Age: 64 Year
  Sex: Male
  Weight: 76.41 kg

DRUGS (1)
  1. MYLOTARG [Suspect]
     Indication: ACUTE MYELOID LEUKAEMIA
     Dosage: 17 MG 1X PER 1 DAY, INTRAVENOUS
     Route: 042
     Dates: start: 20050511, end: 20050511

REACTIONS (1)
  - VENOOCCLUSIVE LIVER DISEASE [None]
